FAERS Safety Report 6421857-9 (Version None)
Quarter: 2009Q4

REPORT INFORMATION
  Report Type: 
  Country: None (occurrence: None)
  Receive Date: 20091029
  Receipt Date: 20091029
  Transmission Date: 20100525
  Serious: Yes (Disabling)
  Sender: FDA-Public Use
  Company Number: None

PATIENT
  Age: 89 Year
  Sex: Female

DRUGS (1)
  1. ADENOSINE [Suspect]
     Indication: ASTHMA

REACTIONS (2)
  - ASTHMA [None]
  - CONDITION AGGRAVATED [None]
